FAERS Safety Report 7039135-6 (Version None)
Quarter: 2010Q3

REPORT INFORMATION
  Report Type: 
  Country: None (occurrence: None)
  Receive Date: 20100927
  Receipt Date: 20100617
  Transmission Date: 20110219
  Serious: Yes (Other)
  Sender: FDA-Public Use
  Company Number: US-WYE-H15739310

PATIENT
  Age: 82 Year
  Sex: Female
  Weight: 58.11 kg

DRUGS (2)
  1. TORISEL [Suspect]
     Indication: RENAL CANCER
     Dosage: INTRAVENOUS
     Route: 042
     Dates: start: 20080220
  2. DIPHENHYDRAMINE HCL [Concomitant]

REACTIONS (1)
  - INJECTION SITE EXTRAVASATION [None]
